FAERS Safety Report 8057315-8 (Version None)
Quarter: 2012Q1

REPORT INFORMATION
  Report Type: 
  Country: None (occurrence: None)
  Receive Date: 20120119
  Receipt Date: 20120117
  Transmission Date: 20120608
  Serious: Yes (Death)
  Sender: FDA-Public Use
  Company Number: US-CELGENEUS-163-21880-12011806

PATIENT
  Sex: Male

DRUGS (2)
  1. EXJADE [Concomitant]
     Indication: LYMPHATIC DISORDER
     Dosage: 100 MILLIGRAM
     Route: 048
     Dates: start: 20110727
  2. REVLIMID [Suspect]
     Indication: MYELODYSPLASTIC SYNDROME
     Dosage: 5 MILLIGRAM
     Route: 048
     Dates: start: 20110819, end: 20110930

REACTIONS (1)
  - DEATH [None]
